FAERS Safety Report 22042721 (Version 2)
Quarter: 2023Q1

REPORT INFORMATION
  Report Type: Spontaneous
  Country: US (occurrence: None)
  Receive Date: 20230228
  Receipt Date: 20230309
  Transmission Date: 20230417
  Serious: No
  Sender: FDA-Public Use
  Company Number: 2023A025721

PATIENT
  Sex: Female
  Weight: 115.2 kg

DRUGS (1)
  1. SAPHNELO [Suspect]
     Active Substance: ANIFROLUMAB-FNIA
     Indication: Systemic lupus erythematosus
     Dosage: UNKNOWN DOSE, EVERY FOUR WEEKS
     Route: 042
     Dates: end: 20221203

REACTIONS (3)
  - Blood pressure decreased [Unknown]
  - Blood pressure increased [Unknown]
  - Fluid retention [Unknown]
